FAERS Safety Report 15670538 (Version 8)
Quarter: 2019Q2

REPORT INFORMATION
  Report Type: Report from Study
  Country: IL (occurrence: IL)
  Receive Date: 20181129
  Receipt Date: 20190603
  Transmission Date: 20190711
  Serious: Yes (Hospitalization, Other)
  Sender: FDA-Public Use
  Company Number: IL-INCYTE CORPORATION-2018IN011985

PATIENT

DRUGS (1)
  1. JAKAVI [Suspect]
     Active Substance: RUXOLITINIB
     Indication: MYELOFIBROSIS
     Dosage: 10 MG, BID
     Route: 048
     Dates: start: 20170710

REACTIONS (34)
  - Abdominal distension [Not Recovered/Not Resolved]
  - Dyspnoea at rest [Not Recovered/Not Resolved]
  - Feeding disorder [Unknown]
  - Pyrexia [Not Recovered/Not Resolved]
  - Hypoglycaemia [Recovered/Resolved]
  - Respiratory rate increased [Not Recovered/Not Resolved]
  - Sinus pain [Not Recovered/Not Resolved]
  - Joint swelling [Recovering/Resolving]
  - Cough [Not Recovered/Not Resolved]
  - Escherichia urinary tract infection [Recovered/Resolved]
  - Asthenia [Not Recovered/Not Resolved]
  - Bone pain [Not Recovered/Not Resolved]
  - Thinking abnormal [Not Recovered/Not Resolved]
  - Fatigue [Not Recovered/Not Resolved]
  - Memory impairment [Unknown]
  - Balance disorder [Not Recovered/Not Resolved]
  - Pain in extremity [Not Recovered/Not Resolved]
  - Hypoacusis [Not Recovered/Not Resolved]
  - Intervertebral disc protrusion [Unknown]
  - Dyspnoea exertional [Not Recovered/Not Resolved]
  - Haemoglobin decreased [Not Recovered/Not Resolved]
  - Pain [Not Recovered/Not Resolved]
  - Middle ear disorder [Unknown]
  - Abdominal pain [Not Recovered/Not Resolved]
  - Arthritis [Not Recovered/Not Resolved]
  - Urinary tract infection [Recovered/Resolved]
  - Vomiting [Not Recovered/Not Resolved]
  - Platelet count decreased [Unknown]
  - Underweight [Unknown]
  - Heart rate increased [Recovering/Resolving]
  - Headache [Not Recovered/Not Resolved]
  - Arthralgia [Recovering/Resolving]
  - Decreased appetite [Not Recovered/Not Resolved]
  - Nightmare [Not Recovered/Not Resolved]

NARRATIVE: CASE EVENT DATE: 201805
